FAERS Safety Report 6629556-5 (Version None)
Quarter: 2010Q1

REPORT INFORMATION
  Report Type: 
  Country: None (occurrence: None)
  Receive Date: 20100311
  Receipt Date: 20100225
  Transmission Date: 20100710
  Serious: Yes (Death)
  Sender: FDA-Public Use
  Company Number: US-ELI_LILLY_AND_COMPANY-US201003001034

PATIENT
  Age: 84 Year
  Sex: Male

DRUGS (1)
  1. FORTEO [Suspect]

REACTIONS (1)
  - DEATH [None]
